FAERS Safety Report 9566059 (Version 7)
Quarter: 2015Q1

REPORT INFORMATION
  Report Type: Report from Study
  Country: CA (occurrence: CA)
  Receive Date: 20130930
  Receipt Date: 20150128
  Transmission Date: 20150721
  Serious: Yes (Other)
  Sender: FDA-Public Use
  Company Number: PHHY2013CA108797

PATIENT
  Age: 74 Year
  Sex: Male

DRUGS (6)
  1. GLEEVEC [Suspect]
     Active Substance: IMATINIB MESYLATE
     Dosage: 400 MG, QD
     Route: 048
     Dates: start: 201407
  2. GLEEVEC [Suspect]
     Active Substance: IMATINIB MESYLATE
     Indication: GASTROINTESTINAL STROMAL TUMOUR
     Dosage: 400 MG, QD
     Route: 048
     Dates: start: 201207
  3. GLEEVEC [Suspect]
     Active Substance: IMATINIB MESYLATE
     Dosage: 600 MG, QD
     Route: 048
  4. GLEEVEC [Suspect]
     Active Substance: IMATINIB MESYLATE
     Dosage: 800 MG, QD
     Route: 048
  5. GLEEVEC [Suspect]
     Active Substance: IMATINIB MESYLATE
     Dosage: 500 MG, QD
     Route: 048
  6. GLEEVEC [Suspect]
     Active Substance: IMATINIB MESYLATE
     Dosage: 800 MG, QD
     Route: 048

REACTIONS (10)
  - Pain [Recovered/Resolved]
  - Joint swelling [Unknown]
  - Weight increased [Unknown]
  - Drug hypersensitivity [Unknown]
  - Malaise [Unknown]
  - Nephrolithiasis [Unknown]
  - Dysgeusia [Unknown]
  - Neoplasm [Recovering/Resolving]
  - Screaming [Unknown]
  - Acrochordon [Unknown]

NARRATIVE: CASE EVENT DATE: 201306
